FAERS Safety Report 16608905 (Version 1)
Quarter: 2019Q3

REPORT INFORMATION
  Report Type: Report from Study
  Country: JP (occurrence: JP)
  Receive Date: 20190722
  Receipt Date: 20190722
  Transmission Date: 20191004
  Serious: Yes (Hospitalization)
  Sender: FDA-Public Use
  Company Number: JP-TEVA-2019-JP-1081388

PATIENT
  Age: 58 Year
  Sex: Male

DRUGS (7)
  1. VANCOMYCIN [Suspect]
     Active Substance: VANCOMYCIN
     Indication: STAPHYLOCOCCAL SEPSIS
     Dosage: 1 GRAM DAILY; FOR ONE WEEK
     Route: 042
  2. MINOCYCLINE [Suspect]
     Active Substance: MINOCYCLINE HYDROCHLORIDE
     Indication: STAPHYLOCOCCAL SEPSIS
     Dosage: 100 MILLIGRAM DAILY; FOR ONE WEEK
     Route: 042
  3. CEFTRIAXONE. [Suspect]
     Active Substance: CEFTRIAXONE
     Indication: STAPHYLOCOCCAL SEPSIS
     Dosage: 1 GRAM DAILY; FOR 11 DAYS
     Route: 042
  4. CLINDAMYCIN. [Suspect]
     Active Substance: CLINDAMYCIN
     Indication: STAPHYLOCOCCAL SEPSIS
     Dosage: 1800 MILLIGRAM DAILY; FOR ONE WEEK
     Route: 042
  5. INSULIN GLARGINE [Suspect]
     Active Substance: INSULIN GLARGINE
     Indication: TYPE 2 DIABETES MELLITUS
     Dosage: 52U/DAY SINCE 15YEARS
     Route: 065
  6. MINOCYCLINE [Suspect]
     Active Substance: MINOCYCLINE HYDROCHLORIDE
     Indication: STAPHYLOCOCCAL SEPSIS
     Dosage: 100 MILLIGRAM DAILY; FOR TWO WEEKS
     Route: 048
  7. INSULIN LISPRO [Suspect]
     Active Substance: INSULIN LISPRO

REACTIONS (3)
  - Amyloidosis [Recovered/Resolved]
  - Injection site mass [Recovered/Resolved]
  - Fat necrosis [Recovered/Resolved]
